FAERS Safety Report 7414532-5 (Version None)
Quarter: 2011Q2

REPORT INFORMATION
  Report Type: 
  Country: None (occurrence: None)
  Receive Date: 20110414
  Receipt Date: 20110406
  Transmission Date: 20111010
  Serious: Yes (Hospitalization)
  Sender: FDA-Public Use
  Company Number: CH-NOVOPROD-324869

PATIENT
  Age: 55 Year
  Sex: Female
  Weight: 113 kg

DRUGS (5)
  1. METFIN [Concomitant]
     Dosage: 1-0-0
     Route: 048
  2. PRAVALOTIN [Concomitant]
     Dosage: 0-0-1-0
     Route: 048
  3. VICTOZA [Suspect]
     Indication: TYPE 2 DIABETES MELLITUS
     Dosage: UNK
     Route: 065
     Dates: end: 20101101
  4. ELTROXIN [Concomitant]
     Dosage: 2-0-0-0
     Route: 048
  5. ASPIRIN [Concomitant]
     Dosage: 1-0-0-0
     Route: 048

REACTIONS (2)
  - HYPERTENSION [None]
  - PANCREATITIS [None]
